FAERS Safety Report 9694020 (Version 1)
Quarter: 2013Q4

REPORT INFORMATION
  Report Type: Spontaneous
  Country: GB (occurrence: GB)
  Receive Date: 20131118
  Receipt Date: 20131118
  Transmission Date: 20140711
  Serious: Yes (Other)
  Sender: FDA-Public Use
  Company Number: GB-ABBVIE-13P-167-1157806-00

PATIENT
  Age: 5 Year
  Sex: Male

DRUGS (2)
  1. EPILIM [Suspect]
     Indication: PETIT MAL EPILEPSY
     Route: 048
     Dates: start: 20130920
  2. EPILIM [Concomitant]
     Indication: PRODUCT USED FOR UNKNOWN INDICATION
     Dates: start: 20130910

REACTIONS (6)
  - Petit mal epilepsy [Unknown]
  - Abnormal behaviour [Unknown]
  - Screaming [Unknown]
  - Psychomotor hyperactivity [Unknown]
  - Aggression [Unknown]
  - Ballismus [Unknown]
